FAERS Safety Report 4601564-5 (Version None)
Quarter: 2005Q1

REPORT INFORMATION
  Report Type: 
  Country: None (occurrence: None)
  Receive Date: 20050131
  Receipt Date: 20041207
  Transmission Date: 20050727
  Serious: Yes (Hospitalization)
  Sender: FDA-Public Use
  Company Number: 200419014US

PATIENT
  Age: 45 Year

DRUGS (6)
  1. KETEK [Suspect]
     Indication: PHARYNGITIS
     Dosage: QD
     Dates: start: 20041021
  2. KETEK [Suspect]
     Indication: SINUSITIS
     Dosage: QD
     Dates: start: 20041021
  3. SYNTHROID [Concomitant]
  4. PHENYLEPHRINE [Concomitant]
  5. GUAIFENESIN [Concomitant]
  6. DEXTROMETHORPHAN HYDROBROMIDE (DIABETIC TUSSIN) [Concomitant]

REACTIONS (4)
  - ANAPHYLACTIC SHOCK [None]
  - CHOKING [None]
  - DYSPHAGIA [None]
  - DYSPNOEA [None]
